FAERS Safety Report 8376536-8 (Version None)
Quarter: 2012Q2

REPORT INFORMATION
  Report Type: 
  Country: None (occurrence: None)
  Receive Date: 20120522
  Receipt Date: 20120516
  Transmission Date: 20120825
  Serious: Yes (Hospitalization)
  Sender: FDA-Public Use
  Company Number: US-BAYER-2012-049523

PATIENT
  Age: 17 Year
  Sex: Female
  Weight: 60.317 kg

DRUGS (11)
  1. AVELOX [Concomitant]
     Dosage: 400 MG, UNK
     Dates: start: 20070529
  2. CIPROFLOXACIN HCL [Concomitant]
     Dosage: 500 MG, UNK
     Dates: start: 20070602
  3. TYLENOL [Concomitant]
  4. ZITHROMAX [Concomitant]
     Dosage: 250 MG, UNK
     Dates: start: 20070509
  5. COLAZAL [Concomitant]
     Dosage: 750 MG, UNK
     Dates: start: 20070529
  6. PROTONIX [Concomitant]
  7. HYOSCYAMINE [Concomitant]
     Dosage: 0.125 MG, UNK
     Dates: start: 20070602
  8. YAZ [Suspect]
     Indication: DYSMENORRHOEA
  9. BISMUTH SUBSALICYLATE [Concomitant]
  10. FLORINEF [Concomitant]
     Indication: ORTHOSTATIC HYPERTENSION
     Dosage: 0.1 MG, UNK
     Dates: start: 20070404, end: 20081107
  11. BENTYL [Concomitant]
     Dosage: 10 MG, UNK
     Dates: start: 20070529

REACTIONS (1)
  - CEREBRAL INFARCTION [None]
